FAERS Safety Report 6713063-5 (Version None)
Quarter: 2010Q2

REPORT INFORMATION
  Report Type: 
  Country: None (occurrence: None)
  Receive Date: 20100506
  Receipt Date: 20100427
  Transmission Date: 20101027
  Serious: Yes (Hospitalization)
  Sender: FDA-Public Use
  Company Number: GR-ASTRAZENECA-2010SE20212

PATIENT
  Age: 75 Year
  Sex: Male

DRUGS (4)
  1. MERONEM [Interacting]
     Indication: RESPIRATORY TRACT INFECTION
     Route: 042
     Dates: start: 20091204, end: 20091215
  2. CIPROXIN [Interacting]
     Indication: RESPIRATORY TRACT INFECTION
     Route: 042
     Dates: start: 20091130, end: 20091204
  3. ZOLOFT [Suspect]
     Indication: PSYCHOTIC DISORDER DUE TO A GENERAL MEDICAL CONDITION
     Route: 048
     Dates: end: 20091224
  4. ZOLOFT [Suspect]
     Indication: DEPRESSION
     Route: 048
     Dates: end: 20091224

REACTIONS (2)
  - DRUG INTERACTION [None]
  - SEROTONIN SYNDROME [None]
